FAERS Safety Report 7878905-9 (Version None)
Quarter: 2011Q4

REPORT INFORMATION
  Report Type: 
  Country: None (occurrence: None)
  Receive Date: 20111101
  Receipt Date: 20111019
  Transmission Date: 20120403
  Serious: Yes (Other)
  Sender: FDA-Public Use
  Company Number: BE-B.I. PHARMACEUTICALS,INC./RIDGEFIELD-2011-DE-05920GD

PATIENT

DRUGS (3)
  1. NEVIRAPINE [Suspect]
     Indication: HIV INFECTION
     Dosage: 400 MG
  2. TMC207 (BEDAQUILINE) [Suspect]
     Indication: DRUG LEVEL
     Dosage: 400 MG
  3. N(T)RTIS [Suspect]
     Indication: HIV INFECTION

REACTIONS (2)
  - DIARRHOEA [None]
  - DEHYDRATION [None]
